FAERS Safety Report 6337994-3 (Version None)
Quarter: 2009Q3

REPORT INFORMATION
  Report Type: 
  Country: None (occurrence: None)
  Receive Date: 20090902
  Receipt Date: 20090819
  Transmission Date: 20100115
  Serious: Yes (Life-Threatening, Hospitalization)
  Sender: FDA-Public Use
  Company Number: DE-MYLANLABS-2009S1014909

PATIENT
  Age: 66 Year
  Sex: Male
  Weight: 120 kg

DRUGS (8)
  1. AZATHIOPRIN [Suspect]
     Indication: PEMPHIGOID
     Route: 048
     Dates: start: 20090603, end: 20090623
  2. CELEBREX [Suspect]
     Indication: OSTEOARTHRITIS
     Route: 048
     Dates: start: 20080101, end: 20090623
  3. ASPIRIN [Suspect]
     Indication: CORONARY ARTERY DISEASE
     Route: 048
     Dates: start: 20040101, end: 20090623
  4. CARVEDILOL [Concomitant]
     Indication: CORONARY ARTERY DISEASE
     Route: 048
     Dates: start: 20040101
  5. KARVEZIDE [Concomitant]
     Indication: HYPERTENSION
     Dosage: 300 MG IRBESARTAN, 12.5 MG HCT
     Route: 048
     Dates: start: 20040101, end: 20090623
  6. FLUVASTATIN [Concomitant]
     Indication: CORONARY ARTERY DISEASE
     Route: 048
     Dates: start: 20040101
  7. PANTOZOL [Concomitant]
     Indication: PROPHYLAXIS AGAINST GASTROINTESTINAL ULCER
     Route: 048
     Dates: start: 20040101
  8. PREDNISOLONE [Concomitant]
     Indication: PEMPHIGOID
     Dosage: AUFGRUND STABILITAT DES DERMATOLOGISCHEN BEFUNDES SCHRITTWEISE REDUKTION
     Route: 048
     Dates: start: 20090603

REACTIONS (1)
  - RENAL FAILURE ACUTE [None]
